FAERS Safety Report 13939918 (Version 1)
Quarter: 2017Q3

REPORT INFORMATION
  Report Type: Spontaneous
  Country: KR (occurrence: KR)
  Receive Date: 20170906
  Receipt Date: 20170906
  Transmission Date: 20171127
  Serious: Yes (Hospitalization)
  Sender: FDA-Public Use
  Company Number: KR-CONCORDIA PHARMACEUTICALS INC.-GSH201709-005011

PATIENT
  Age: 68 Year
  Sex: Male

DRUGS (4)
  1. METHOTREXATE. [Suspect]
     Active Substance: METHOTREXATE
     Indication: HENOCH-SCHONLEIN PURPURA
     Route: 065
  2. ETOPOSIDE. [Suspect]
     Active Substance: ETOPOSIDE
     Indication: SMALL CELL LUNG CANCER
     Route: 042
  3. HYDROXYCHLOROQUINE [Suspect]
     Active Substance: HYDROXYCHLOROQUINE
     Indication: HENOCH-SCHONLEIN PURPURA
     Route: 065
  4. CISPLATIN. [Suspect]
     Active Substance: CISPLATIN
     Indication: SMALL CELL LUNG CANCER
     Route: 042

REACTIONS (19)
  - Henoch-Schonlein purpura [Recovering/Resolving]
  - Malaise [Unknown]
  - Haematuria [Unknown]
  - Hypersensitivity vasculitis [Unknown]
  - Palpable purpura [Unknown]
  - Cytomegalovirus duodenitis [Recovering/Resolving]
  - Off label use [Unknown]
  - Therapeutic response decreased [Unknown]
  - Abdominal pain [Unknown]
  - Rash generalised [Unknown]
  - Proteinuria [Unknown]
  - Duodenal ulcer [Unknown]
  - Complement factor C4 decreased [Unknown]
  - Blood albumin decreased [Unknown]
  - Creatinine urine decreased [Unknown]
  - Kidney fibrosis [Unknown]
  - Infection reactivation [Recovering/Resolving]
  - Haematochezia [Unknown]
  - Complement factor C3 decreased [Unknown]
